FAERS Safety Report 5850621-4 (Version None)
Quarter: 2008Q3

REPORT INFORMATION
  Report Type: 
  Country: None (occurrence: None)
  Receive Date: 20080818
  Receipt Date: 20080520
  Transmission Date: 20090109
  Serious: Yes (Death, Hospitalization)
  Sender: FDA-Public Use
  Company Number: WAES 0805AUS00087

PATIENT
  Age: 65 Year
  Sex: Male

DRUGS (4)
  1. ISENTRESS [Suspect]
     Indication: HIV INFECTION
     Dosage: 400 MG/BID PO
     Route: 048
     Dates: start: 20070528, end: 20071221
  2. TRUVADA [Suspect]
     Indication: HIV INFECTION
     Dosage: 1 TAB/2XW PO
     Route: 048
     Dates: start: 20051019
  3. DARUNAVIR [Suspect]
     Indication: HIV INFECTION
     Dosage: 600 MG/ BID PO
     Route: 048
     Dates: start: 20070601, end: 20071221
  4. RITONAVIR [Suspect]
     Indication: HIV INFECTION
     Dosage: 100 MG/ BID PO
     Route: 048
     Dates: start: 20051019, end: 20071221

REACTIONS (13)
  - ACUTE CORONARY SYNDROME [None]
  - ACUTE PULMONARY OEDEMA [None]
  - ANAEMIA [None]
  - CARDIAC FAILURE [None]
  - CONSTIPATION [None]
  - GASTROINTESTINAL HAEMORRHAGE [None]
  - MALAISE [None]
  - MELAENA [None]
  - METABOLIC ACIDOSIS [None]
  - MUSCULAR WEAKNESS [None]
  - OXYGEN SATURATION DECREASED [None]
  - PULMONARY HYPERTENSION [None]
  - RESPIRATORY TRACT INFECTION [None]
